FAERS Safety Report 9031593 (Version 2)
Quarter: 2013Q2

REPORT INFORMATION
  Report Type: Report from Study
  Country: CA (occurrence: CA)
  Receive Date: 20130124
  Receipt Date: 20130516
  Transmission Date: 20140414
  Serious: Yes (Other)
  Sender: FDA-Public Use
  Company Number: CA-UCBSA-076333

PATIENT
  Age: 48 Year
  Sex: Female
  Weight: 79.09 kg

DRUGS (7)
  1. CIMZIA [Suspect]
     Indication: RHEUMATOID ARTHRITIS
     Route: 058
     Dates: start: 2009, end: 20121207
  2. MTX [Concomitant]
     Indication: RHEUMATOID ARTHRITIS
     Route: 048
     Dates: start: 2007
  3. MTX [Concomitant]
     Indication: RHEUMATOID ARTHRITIS
     Dates: start: 20130114
  4. NAPROXEN [Concomitant]
     Indication: RHEUMATOID ARTHRITIS
     Route: 048
     Dates: start: 2007
  5. CALCIUM [Concomitant]
     Indication: RHEUMATOID ARTHRITIS
     Route: 048
  6. CALCIUM [Concomitant]
     Indication: RHEUMATOID ARTHRITIS
     Dates: start: 20130114, end: 20130507
  7. VIT D3 [Concomitant]
     Dates: end: 20130507

REACTIONS (2)
  - Nephrolithiasis [Unknown]
  - Vitamin D deficiency [Unknown]
